FAERS Safety Report 22090004 (Version 3)
Quarter: 2024Q1

REPORT INFORMATION
  Report Type: Report from Study
  Country: US (occurrence: US)
  Receive Date: 20230313
  Receipt Date: 20240127
  Transmission Date: 20240410
  Serious: Yes (Other)
  Sender: FDA-Public Use
  Company Number: US-ABBVIE-4269736

PATIENT
  Age: 31 Year
  Sex: Female

DRUGS (5)
  1. HUMIRA [Suspect]
     Active Substance: ADALIMUMAB
     Indication: Colitis ulcerative
     Dosage: FORM STRENGTH: 40MG ,CITRATE FREE
     Route: 058
     Dates: start: 20160622
  2. HUMIRA [Suspect]
     Active Substance: ADALIMUMAB
     Dosage: FORM STRENGTH: 40MG ,CITRATE FREE
     Route: 058
  3. HUMIRA [Suspect]
     Active Substance: ADALIMUMAB
     Dosage: FORM STRENGTH: 40MG ,CITRATE FREE
     Route: 058
  4. HUMIRA [Suspect]
     Active Substance: ADALIMUMAB
     Dosage: FORM STRENGTH 40 MILLIGRAM, CITRATE FREE
     Route: 058
  5. HUMIRA [Suspect]
     Active Substance: ADALIMUMAB
     Dosage: FORM STRENGTH 40 MILLIGRAM, CITRATE FREE
     Route: 058

REACTIONS (23)
  - Fall [Unknown]
  - Fatigue [Unknown]
  - Blood triglycerides increased [Unknown]
  - Colitis ulcerative [Unknown]
  - Stress [Unknown]
  - Colitis ulcerative [Recovered/Resolved]
  - Anaemia [Unknown]
  - Blood iron decreased [Recovering/Resolving]
  - Blood oestrogen decreased [Unknown]
  - Malaise [Unknown]
  - Vitamin D decreased [Unknown]
  - Mental fatigue [Unknown]
  - Hypothyroidism [Unknown]
  - Heavy menstrual bleeding [Unknown]
  - Glucose tolerance impaired [Unknown]
  - Oligomenorrhoea [Unknown]
  - Emotional disorder [Unknown]
  - Progesterone deficiency [Unknown]
  - Menstruation irregular [Unknown]
  - Skin laceration [Unknown]
  - Blood cholesterol increased [Unknown]
  - Enzyme abnormality [Unknown]
  - Temperature intolerance [Unknown]

NARRATIVE: CASE EVENT DATE: 20200611
